FAERS Safety Report 4392302-2 (Version None)
Quarter: 2004Q3

REPORT INFORMATION
  Report Type: 
  Country: None (occurrence: None)
  Receive Date: 20040702
  Receipt Date: 20040305
  Transmission Date: 20050211
  Serious: Yes (Other)
  Sender: FDA-Public Use
  Company Number: 2004UW04147

PATIENT
  Age: 75 Year
  Sex: Male
  Weight: 68.0396 kg

DRUGS (9)
  1. CRESTOR [Suspect]
     Indication: BLOOD CHOLESTEROL INCREASED
     Dosage: 5 MG PO
     Route: 048
     Dates: start: 20040101
  2. DIGOXIN [Concomitant]
  3. TERAZOSIN HCL [Concomitant]
  4. GLUCOSAMINE [Concomitant]
  5. LEVODOPA [Concomitant]
  6. METOPROLOL [Concomitant]
  7. IRON [Concomitant]
  8. ASPIRIN [Concomitant]
  9. SAL PALMETTO [Concomitant]

REACTIONS (1)
  - URINARY INCONTINENCE [None]
